FAERS Safety Report 24711280 (Version 1)
Quarter: 2024Q4

REPORT INFORMATION
  Report Type: Spontaneous
  Country: CN (occurrence: CN)
  Receive Date: 20241209
  Receipt Date: 20241209
  Transmission Date: 20250114
  Serious: Yes (Other)
  Sender: PFIZER
  Company Number: CN-PFIZER INC-PV202400158215

PATIENT
  Age: 62 Year
  Sex: Male
  Weight: 63 kg

DRUGS (4)
  1. PACLITAXEL [Suspect]
     Active Substance: PACLITAXEL
     Indication: Symptomatic treatment
     Dosage: 300 MG, 1X/DAY
     Route: 041
     Dates: start: 20200119, end: 20200119
  2. PACLITAXEL [Suspect]
     Active Substance: PACLITAXEL
     Indication: Oesophageal carcinoma
  3. CARBOPLATIN [Suspect]
     Active Substance: CARBOPLATIN
     Indication: Chemotherapy
     Dosage: 0.65 G, 1X/DAY
     Route: 041
     Dates: start: 20200119, end: 20200119
  4. CARBOPLATIN [Suspect]
     Active Substance: CARBOPLATIN
     Indication: Oesophageal carcinoma

REACTIONS (6)
  - Hiccups [Recovering/Resolving]
  - Decreased appetite [Unknown]
  - Nausea [Unknown]
  - Depressed mood [Unknown]
  - Asthenia [Unknown]
  - Off label use [Unknown]

NARRATIVE: CASE EVENT DATE: 20200119
